FAERS Safety Report 12600459 (Version 8)
Quarter: 2017Q3

REPORT INFORMATION
  Report Type: Spontaneous
  Country: US (occurrence: US)
  Receive Date: 20160727
  Receipt Date: 20170725
  Transmission Date: 20171127
  Serious: Yes (Death, Life-Threatening, Hospitalization, Other)
  Sender: FDA-Public Use
  Company Number: US-ACTELION-A-US2016-133676

PATIENT
  Age: 9 Year
  Sex: Male
  Weight: 18.59 kg

DRUGS (4)
  1. SILDENAFIL. [Suspect]
     Active Substance: SILDENAFIL
     Indication: PULMONARY HYPERTENSION
     Dosage: 20 MG, TID
     Route: 065
     Dates: start: 20150209
  2. SILDENAFIL. [Suspect]
     Active Substance: SILDENAFIL
     Dosage: 2.5 MG/ML, TID
     Route: 065
     Dates: start: 20150209
  3. REMODULIN [Suspect]
     Active Substance: TREPROSTINIL
     Indication: PULMONARY HYPERTENSION
     Dosage: 12 MG/KG, UNK
     Route: 065
  4. TRACLEER [Suspect]
     Active Substance: BOSENTAN
     Indication: PULMONARY HYPERTENSION
     Dosage: 31.25 MG, BID
     Route: 048
     Dates: start: 20160315

REACTIONS (15)
  - Pulmonary hypertension [Fatal]
  - Seizure [Recovered/Resolved]
  - Dehydration [Unknown]
  - Vascular resistance pulmonary increased [Unknown]
  - Dyspnoea [Unknown]
  - Rash [Unknown]
  - Malaise [Unknown]
  - Chest discomfort [Recovered/Resolved]
  - Syncope [Recovered/Resolved]
  - Cardiac failure [Fatal]
  - Eye movement disorder [Recovered/Resolved]
  - Pallor [Recovered/Resolved]
  - Cyanosis [Recovered/Resolved]
  - Right ventricular dysfunction [Unknown]
  - Presyncope [Fatal]

NARRATIVE: CASE EVENT DATE: 20160627
